FAERS Safety Report 5770880-6 (Version None)
Quarter: 2008Q2

REPORT INFORMATION
  Report Type: 
  Country: None (occurrence: None)
  Receive Date: 20080613
  Receipt Date: 20080519
  Transmission Date: 20081010
  Serious: No
  Sender: FDA-Public Use
  Company Number: US-ABBOTT-08P-163-0452466-00

PATIENT
  Age: 39 Year
  Sex: Male
  Weight: 115.77 kg

DRUGS (1)
  1. HUMIRA [Suspect]
     Indication: PSORIASIS
     Route: 058
     Dates: start: 20080516, end: 20080520

REACTIONS (6)
  - ANXIETY [None]
  - BLEPHAROSPASM [None]
  - INSOMNIA [None]
  - MUSCLE TWITCHING [None]
  - MUSCULAR WEAKNESS [None]
  - NIGHT SWEATS [None]
